FAERS Safety Report 8919369 (Version 1)
Quarter: 2012Q4

REPORT INFORMATION
  Report Type: Spontaneous
  Country: BR (occurrence: None)
  Receive Date: 20121114
  Receipt Date: 20121114
  Transmission Date: 20130627
  Serious: Yes (Other)
  Sender: FDA-Public Use
  Company Number: CIP-2012-00423

PATIENT

DRUGS (6)
  1. EPIRUBICIN [Suspect]
     Indication: BREAST CANCER
  2. DOCETAXEL [Suspect]
     Indication: BREAST CANCER
  3. FLUOROURACIL [Suspect]
     Indication: BREAST CANCER
  4. CYCLOPHOSPHAMIDE [Suspect]
     Indication: BREAST CANCER
  5. TRASTUZUMAB [Suspect]
     Indication: BREAST CANCER
     Dosage: 8mg/kg loading dose
     Route: 042
  6. TRASTUZUMAB [Suspect]
     Indication: BREAST CANCER
     Dosage: 6 mg/kg maintenance dose (every 3 weeks), Intravenous
     Route: 042

REACTIONS (1)
  - Hypertension [None]
